FAERS Safety Report 7590399-X (Version None)
Quarter: 2011Q3

REPORT INFORMATION
  Report Type: 
  Country: None (occurrence: None)
  Receive Date: 20110705
  Receipt Date: 20110627
  Transmission Date: 20111222
  Serious: Yes (Death, Other)
  Sender: FDA-Public Use
  Company Number: JP-BRISTOL-MYERS SQUIBB COMPANY-15870298

PATIENT
  Age: 76 Year
  Sex: Male

DRUGS (3)
  1. TAXOL [Suspect]
     Indication: ADENOSQUAMOUS CELL LUNG CANCER
     Dates: start: 20100301
  2. CARBOPLATIN [Suspect]
     Indication: ADENOSQUAMOUS CELL LUNG CANCER
     Dates: start: 20100301
  3. TAXOTERE [Suspect]
     Indication: ADENOSQUAMOUS CELL LUNG CANCER
     Dates: start: 20100101

REACTIONS (3)
  - RASH [None]
  - NEPHRITIS [None]
  - RENAL FAILURE [None]
